FAERS Safety Report 11776499 (Version 1)
Quarter: 2015Q4

REPORT INFORMATION
  Report Type: Spontaneous
  Country: US (occurrence: None)
  Receive Date: 20151123
  Receipt Date: 20151123
  Transmission Date: 20160304
  Serious: Yes (Life-Threatening, Hospitalization)
  Sender: FDA-Public Use
  Company Number: None

PATIENT
  Age: 7 Month
  Sex: Female
  Weight: 8 kg

DRUGS (2)
  1. DESMOPRESSIN [Suspect]
     Active Substance: DESMOPRESSIN
     Indication: DIAGNOSTIC PROCEDURE
     Route: 058
  2. WATER DEPRIVATION [Concomitant]

REACTIONS (3)
  - Status epilepticus [None]
  - Diabetes insipidus [None]
  - Seizure [None]

NARRATIVE: CASE EVENT DATE: 20151112
